FAERS Safety Report 14314458 (Version 1)
Quarter: 2017Q4

REPORT INFORMATION
  Report Type: Spontaneous
  Country: ES (occurrence: ES)
  Receive Date: 20171218
  Receipt Date: 20171218
  Transmission Date: 20180321
  Serious: Yes (Hospitalization)
  Sender: FDA-Public Use
  Company Number: ES-MACLEODS PHARMACEUTICALS US LTD-MAC2017006943

PATIENT

DRUGS (4)
  1. QUETIAPINE. [Suspect]
     Active Substance: QUETIAPINE
     Indication: PRODUCT USED FOR UNKNOWN INDICATION
     Dosage: UNK, SINGLE, TOOK MULTIPLE PILLS
     Route: 048
  2. TOPIRAMATE. [Suspect]
     Active Substance: TOPIRAMATE
     Indication: PRODUCT USED FOR UNKNOWN INDICATION
     Dosage: UNK, SINGLE TOOK MULTIPLE PILLS
     Route: 048
  3. DULOXETINE. [Suspect]
     Active Substance: DULOXETINE
     Indication: PRODUCT USED FOR UNKNOWN INDICATION
     Dosage: UNK, SINGLE, TOOK MULTIPLE PILLS
     Route: 048
  4. CLORAZEPATE [Suspect]
     Active Substance: CLORAZEPATE DIPOTASSIUM
     Indication: PRODUCT USED FOR UNKNOWN INDICATION
     Dosage: UNK, SINGLE TOOK MULTIPLE PILLS
     Route: 048

REACTIONS (7)
  - Mydriasis [Recovered/Resolved]
  - Skin plaque [Recovered/Resolved]
  - Intentional overdose [Recovered/Resolved]
  - Coma blister [Recovered/Resolved]
  - Loss of consciousness [Recovered/Resolved]
  - Skin lesion [Recovered/Resolved]
  - Pallor [Recovered/Resolved]
